FAERS Safety Report 7059583-8 (Version None)
Quarter: 2010Q4

REPORT INFORMATION
  Report Type: 
  Country: None (occurrence: None)
  Receive Date: 20101025
  Receipt Date: 20101014
  Transmission Date: 20110411
  Serious: Yes (Other)
  Sender: FDA-Public Use
  Company Number: PHHY2010BR69422

PATIENT
  Sex: Male

DRUGS (5)
  1. DIOVAN [Suspect]
     Indication: HYPERTENSION
     Dosage: 2 TABLETS A DAY
     Route: 048
  2. APRESOLINE [Suspect]
     Dosage: 2 TABLETS A DAY
  3. ATENSINA [Concomitant]
     Dosage: 2 TABLETS A DAY
  4. ANGIPRESS [Concomitant]
     Dosage: HALF TABLET A DAY
     Dates: start: 20080101
  5. DICLOFENAC SODIUM [Concomitant]
     Indication: BACK PAIN
     Dosage: 2 TABLETS A DAY
     Route: 048

REACTIONS (1)
  - BLOOD PRESSURE INCREASED [None]
